FAERS Safety Report 17199924 (Version 1)
Quarter: 2019Q4

REPORT INFORMATION
  Report Type: Spontaneous
  Country: IT (occurrence: IT)
  Receive Date: 20191226
  Receipt Date: 20191226
  Transmission Date: 20200122
  Serious: Yes (Other)
  Sender: FDA-Public Use
  Company Number: IT-TEVA-2019-IT-1157019

PATIENT
  Age: 45 Year
  Sex: Female
  Weight: 70 kg

DRUGS (4)
  1. CISPLATIN. [Suspect]
     Active Substance: CISPLATIN
     Indication: ADRENAL GLAND CANCER METASTATIC
     Dosage: 69 MG
     Route: 065
     Dates: start: 20191003, end: 20191011
  2. DOXORUBICIN HYDROCHLORIDE. [Suspect]
     Active Substance: DOXORUBICIN HYDROCHLORIDE
     Indication: ADRENAL GLAND CANCER METASTATIC
     Dosage: 30 MG
     Route: 042
     Dates: start: 20191003, end: 20191010
  3. ACCOFIL 30 MU/0.5 ML SOLUTION FOR INJECTION OR INFUSION IN PRE-FILLED [Concomitant]
     Indication: PROPHYLAXIS
     Dosage: 30 MU
     Route: 058
     Dates: start: 20191013, end: 20191016
  4. ETOPOSIDE. [Suspect]
     Active Substance: ETOPOSIDE
     Indication: ADRENAL GLAND CANCER METASTATIC
     Dosage: 100 MG
     Route: 042
     Dates: start: 20191007, end: 20191009

REACTIONS (1)
  - Pancytopenia [Recovered/Resolved]

NARRATIVE: CASE EVENT DATE: 20191018
